FAERS Safety Report 26047272 (Version 1)
Quarter: 2025Q4

REPORT INFORMATION
  Report Type: Spontaneous
  Country: EU (occurrence: EU)
  Receive Date: 20251114
  Receipt Date: 20251114
  Transmission Date: 20260118
  Serious: Yes (Hospitalization, Other)
  Sender: BRISTOL-MYERS SQUIBB COMPANY
  Company Number: None

PATIENT
  Age: 79 Year
  Sex: Male

DRUGS (4)
  1. OPDIVO [Suspect]
     Active Substance: NIVOLUMAB
     Indication: Lung neoplasm malignant
     Dosage: 3MG/KG EVERY 3 WEEKS?1 VIAL 4 ML
     Route: 042
     Dates: start: 20250823, end: 20250910
  2. YERVOY [Suspect]
     Active Substance: IPILIMUMAB
     Indication: Lung neoplasm malignant
     Dosage: 1MG/KG EVERY 6 WEEKS?1 VIAL OF 10 ML
     Route: 042
     Dates: start: 20250823, end: 20250910
  3. CARBOPLATIN [Concomitant]
     Active Substance: CARBOPLATIN
     Indication: Lung neoplasm malignant
     Dosage: AUC5 (80%) EVERY 21 DAYS
     Route: 042
     Dates: start: 20250823, end: 20250910
  4. PACLITAXEL [Concomitant]
     Active Substance: PACLITAXEL
     Indication: Lung neoplasm malignant
     Dosage: 175MG/M2 EVERY 21 DAYS
     Route: 042
     Dates: start: 20250823, end: 20250910

REACTIONS (4)
  - Immune-mediated hepatitis [Recovering/Resolving]
  - Immune-mediated dermatitis [Recovering/Resolving]
  - Hepatic cytolysis [Recovering/Resolving]
  - Hyperbilirubinaemia [Recovering/Resolving]

NARRATIVE: CASE EVENT DATE: 20250910
